FAERS Safety Report 23649193 (Version 4)
Quarter: 2025Q1

REPORT INFORMATION
  Report Type: Report from Study
  Country: US (occurrence: US)
  Receive Date: 20240319
  Receipt Date: 20250117
  Transmission Date: 20250408
  Serious: No
  Sender: SANDOZ
  Company Number: US-SANDOZ-SDZ2024US011352

PATIENT
  Age: 9 Year
  Sex: Male

DRUGS (6)
  1. OMNITROPE [Suspect]
     Active Substance: SOMATROPIN
     Indication: Short stature
     Dosage: 0.9 MG 2
     Route: 058
  2. OMNITROPE [Suspect]
     Active Substance: SOMATROPIN
     Indication: Short stature
     Dosage: 0.9 MG 2
     Route: 058
  3. OMNITROPE [Suspect]
     Active Substance: SOMATROPIN
     Dosage: UNK UNK, QD
     Route: 058
     Dates: start: 20240201, end: 20250109
  4. OMNITROPE [Suspect]
     Active Substance: SOMATROPIN
     Dosage: UNK UNK, QD
     Route: 058
     Dates: start: 20240201, end: 20250109
  5. OMNITROPE [Suspect]
     Active Substance: SOMATROPIN
     Dosage: 0.9 ML, QD
     Route: 065
  6. OMNITROPE [Suspect]
     Active Substance: SOMATROPIN
     Dosage: 0.9 ML, QD
     Route: 065

REACTIONS (2)
  - Injection site bruising [Unknown]
  - Drug administered in wrong device [Unknown]

NARRATIVE: CASE EVENT DATE: 20240201
